FAERS Safety Report 10814993 (Version 1)
Quarter: 2015Q1

REPORT INFORMATION
  Report Type: Report from Study
  Country: US (occurrence: US)
  Receive Date: 20150218
  Receipt Date: 20150218
  Transmission Date: 20150721
  Serious: No
  Sender: FDA-Public Use
  Company Number: US-ABBVIE-14K-163-1279109-00

PATIENT
  Age: 53 Year
  Sex: Female

DRUGS (8)
  1. COD LIVER OIL [Concomitant]
     Active Substance: COD LIVER OIL
     Indication: PRODUCT USED FOR UNKNOWN INDICATION
  2. UNKNOWN SUPPLEMENTS [Concomitant]
     Active Substance: UNSPECIFIED INGREDIENT
     Indication: SUPPLEMENTATION THERAPY
  3. PREDNISONE. [Concomitant]
     Active Substance: PREDNISONE
     Indication: PRODUCT USED FOR UNKNOWN INDICATION
  4. HUMIRA [Suspect]
     Active Substance: ADALIMUMAB
     Indication: RHEUMATOID ARTHRITIS
     Dates: start: 20140618, end: 201407
  5. HUMIRA [Suspect]
     Active Substance: ADALIMUMAB
     Dates: start: 20140806
  6. LEFLUNOMIDE. [Concomitant]
     Active Substance: LEFLUNOMIDE
     Indication: RHEUMATOID ARTHRITIS
  7. ACTONEL [Concomitant]
     Active Substance: RISEDRONATE SODIUM
     Indication: OSTEOPOROSIS
  8. FISH OIL [Concomitant]
     Active Substance: FISH OIL
     Indication: PRODUCT USED FOR UNKNOWN INDICATION

REACTIONS (5)
  - Injection site haemorrhage [Unknown]
  - Injection site pain [Not Recovered/Not Resolved]
  - Fungal infection [Not Recovered/Not Resolved]
  - Urine odour abnormal [Unknown]
  - Cystitis [Not Recovered/Not Resolved]

NARRATIVE: CASE EVENT DATE: 2014
